FAERS Safety Report 9548458 (Version 1)
Quarter: 2013Q3

REPORT INFORMATION
  Report Type: Spontaneous
  Country: US (occurrence: US)
  Receive Date: 20130924
  Receipt Date: 20130924
  Transmission Date: 20140515
  Serious: No
  Sender: FDA-Public Use
  Company Number: US-PFIZER INC-2013272618

PATIENT
  Age: 86 Year
  Sex: Female
  Weight: 49.89 kg

DRUGS (4)
  1. ADVIL [Suspect]
     Indication: PAIN
     Dosage: UNK, TWO TIMES A DAY
  2. ADVIL [Suspect]
     Indication: INSOMNIA
  3. LEVOTHYROXINE [Concomitant]
     Dosage: UNK
  4. LISINOPRIL [Concomitant]
     Dosage: UNK

REACTIONS (3)
  - Poor quality drug administered [Unknown]
  - Drug ineffective [Unknown]
  - Product label issue [Unknown]
